FAERS Safety Report 5799597-9 (Version None)
Quarter: 2008Q3

REPORT INFORMATION
  Report Type: 
  Country: None (occurrence: None)
  Receive Date: 20080703
  Receipt Date: 20080620
  Transmission Date: 20090109
  Serious: Yes (Hospitalization, Other)
  Sender: FDA-Public Use
  Company Number: PHHY2008DE11822

PATIENT
  Age: 75 Year
  Sex: Male

DRUGS (3)
  1. DIOVAN HCT [Suspect]
     Indication: HYPERTENSION
     Dosage: UNK
     Route: 048
     Dates: start: 20020101, end: 20080601
  2. MARCUMAR [Concomitant]
  3. ACETYLSALICYLIC ACID SRT [Concomitant]

REACTIONS (6)
  - FATIGUE [None]
  - HAEMATOCHEZIA [None]
  - HEART VALVE OPERATION [None]
  - NAUSEA [None]
  - PRURITUS [None]
  - SPINAL CORD OPERATION [None]
